FAERS Safety Report 6081271-5 (Version None)
Quarter: 2009Q1

REPORT INFORMATION
  Report Type: 
  Country: None (occurrence: None)
  Receive Date: 20090217
  Receipt Date: 20090206
  Transmission Date: 20090719
  Serious: Yes (Other)
  Sender: FDA-Public Use
  Company Number: US-JNJCH-2009003611

PATIENT
  Age: 94 Year
  Sex: Female
  Weight: 34.9 kg

DRUGS (3)
  1. BENADRYL CREAM EXTRA STRENGTH [Suspect]
     Indication: PRURITUS
     Dosage: TEXT:A LOT ALL OVER HER BODY TWICE
     Route: 061
     Dates: start: 20090204, end: 20090205
  2. ACIPHEX [Concomitant]
     Indication: GASTRIC DISORDER
     Dosage: TEXT:10 MG ONCE A DAY
     Route: 065
  3. MIRTAZAPINE [Concomitant]
     Dosage: TEXT:15 MG AT NIGHT
     Route: 065

REACTIONS (6)
  - ASTHENIA [None]
  - DRUG ADMINISTRATION ERROR [None]
  - FATIGUE [None]
  - INCOHERENT [None]
  - SEDATION [None]
  - SOMNOLENCE [None]
